FAERS Safety Report 23904454 (Version 1)
Quarter: 2024Q2

REPORT INFORMATION
  Report Type: Spontaneous
  Country: CH (occurrence: CH)
  Receive Date: 20240527
  Receipt Date: 20240527
  Transmission Date: 20240716
  Serious: Yes (Other)
  Sender: FDA-Public Use
  Company Number: CH-PURACAP-CH-2024EPCLIT00536

PATIENT
  Age: 80 Year

DRUGS (2)
  1. ERGOCALCIFEROL [Suspect]
     Active Substance: ERGOCALCIFEROL
     Indication: Foot fracture
     Route: 065
  2. CALCIUM BICARBONATE [Concomitant]
     Active Substance: CALCIUM BICARBONATE
     Indication: Gastrooesophageal reflux disease
     Route: 065

REACTIONS (3)
  - Milk-alkali syndrome [Unknown]
  - Toxicity to various agents [Unknown]
  - Product use in unapproved indication [Unknown]
